FAERS Safety Report 4855968-6 (Version None)
Quarter: 2005Q4

REPORT INFORMATION
  Report Type: 
  Country: None (occurrence: None)
  Receive Date: 20051214
  Receipt Date: 20051201
  Transmission Date: 20060501
  Serious: No
  Sender: FDA-Public Use
  Company Number: 2005157485

PATIENT
  Age: 55 Year
  Sex: Female
  Weight: 122.4712 kg

DRUGS (9)
  1. LYRICA [Suspect]
     Indication: NEURALGIA
     Dosage: 100 MG (50 MG, 2 IN 1 D), ORAL
     Route: 048
     Dates: start: 20051101, end: 20051101
  2. LIPITOR [Concomitant]
  3. ALTACE [Concomitant]
  4. AMITRIPTYLINE (AMITRIPTYLINE) [Concomitant]
  5. NEXIUM [Concomitant]
  6. ALPRAZOLAM [Concomitant]
  7. ALLEGRA [Concomitant]
  8. CARISOPRODOL [Concomitant]
  9. NEURONTIN [Concomitant]

REACTIONS (1)
  - DRUG INEFFECTIVE [None]
